FAERS Safety Report 4758162-2 (Version None)
Quarter: 2005Q3

REPORT INFORMATION
  Report Type: 
  Country: None (occurrence: None)
  Receive Date: 20050829
  Receipt Date: 20050823
  Transmission Date: 20060218
  Serious: Yes (Life-Threatening, Hospitalization, Other)
  Sender: FDA-Public Use
  Company Number: 2005-07-1403

PATIENT
  Age: 52 Year
  Sex: Male
  Weight: 81 kg

DRUGS (1)
  1. PEG-INTRON [Suspect]
     Indication: HEPATITIS C
     Dosage: 0.5 MCG/KG/WK SUBCUANEO
     Route: 058
     Dates: start: 20050415, end: 20050715

REACTIONS (8)
  - BRONCHIECTASIS [None]
  - BRONCHITIS [None]
  - CONDITION AGGRAVATED [None]
  - HAEMOPHILUS INFECTION [None]
  - HAEMOPTYSIS [None]
  - INFLAMMATION [None]
  - OBSTRUCTIVE AIRWAYS DISORDER [None]
  - PULMONARY HAEMORRHAGE [None]
